FAERS Safety Report 9205896 (Version 1)
Quarter: 2013Q2

REPORT INFORMATION
  Report Type: Spontaneous
  Country: US (occurrence: US)
  Receive Date: 20130403
  Receipt Date: 20130403
  Transmission Date: 20140414
  Serious: Yes (Other)
  Sender: FDA-Public Use
  Company Number: US-009507513-1304USA001290

PATIENT
  Sex: 0

DRUGS (2)
  1. TEMODAR [Suspect]
     Indication: NEUROENDOCRINE CARCINOMA METASTATIC
  2. CAPECITABINE [Suspect]
     Indication: NEUROENDOCRINE CARCINOMA METASTATIC

REACTIONS (1)
  - Diarrhoea [Unknown]
